FAERS Safety Report 5076612-1 (Version None)
Quarter: 2006Q3

REPORT INFORMATION
  Report Type: 
  Country: None (occurrence: None)
  Receive Date: 20060725
  Receipt Date: 20060309
  Transmission Date: 20061208
  Serious: No
  Sender: FDA-Public Use
  Company Number: 200611392BWH

PATIENT
  Age: 45 Year
  Sex: Female

DRUGS (9)
  1. NEXAVAR [Suspect]
     Indication: ADRENAL DISORDER
     Dosage: SEE IMAGE
     Route: 048
     Dates: start: 20060227, end: 20060303
  2. NEXAVAR [Suspect]
     Indication: ONCOCYTOMA
     Dosage: SEE IMAGE
     Route: 048
     Dates: start: 20060227, end: 20060303
  3. NEXAVAR [Suspect]
     Indication: ADRENAL DISORDER
     Dosage: SEE IMAGE
     Route: 048
     Dates: start: 20060303
  4. NEXAVAR [Suspect]
     Indication: ONCOCYTOMA
     Dosage: SEE IMAGE
     Route: 048
     Dates: start: 20060303
  5. PREDNISONE TAB [Concomitant]
  6. FLORINEF [Concomitant]
  7. ACTONEL [Concomitant]
  8. PROCRIT [Concomitant]
  9. CALCIUM GLUCONATE [Concomitant]

REACTIONS (9)
  - C-REACTIVE PROTEIN INCREASED [None]
  - CHILLS [None]
  - DYSPNOEA [None]
  - GENITAL PRURITUS FEMALE [None]
  - GLOSSODYNIA [None]
  - MOBILITY DECREASED [None]
  - PAIN [None]
  - PYREXIA [None]
  - VAGINAL SWELLING [None]
